FAERS Safety Report 9734241 (Version 2)
Quarter: 2013Q4

REPORT INFORMATION
  Report Type: Not Available
  Country: US (occurrence: US)
  Receive Date: 20131205
  Receipt Date: 20131205
  Transmission Date: 20140711
  Serious: Yes (Hospitalization)
  Sender: FDA-Public Use
  Company Number: US-ONYX-2013-1880

PATIENT
  Age: 86 Year
  Sex: Male

DRUGS (7)
  1. KYPROLIS [Suspect]
     Indication: PLASMA CELL MYELOMA
     Route: 042
     Dates: start: 20131015, end: 20131030
  2. IRON [Concomitant]
     Indication: MINERAL SUPPLEMENTATION
  3. LOVASTATIN [Concomitant]
     Indication: BLOOD CHOLESTEROL INCREASED
  4. LYRICA [Concomitant]
     Indication: NEUROPATHY PERIPHERAL
  5. PROTONIX [Concomitant]
  6. PROCRIT [Concomitant]
     Indication: ANAEMIA
  7. JANUVIA [Concomitant]
     Indication: DIABETES MELLITUS

REACTIONS (2)
  - Gastrointestinal haemorrhage [Recovered/Resolved]
  - Neutropenia [Not Recovered/Not Resolved]
